FAERS Safety Report 15230183 (Version 2)
Quarter: 2019Q3

REPORT INFORMATION
  Report Type: Spontaneous
  Country: US (occurrence: US)
  Receive Date: 20180802
  Receipt Date: 20190805
  Transmission Date: 20191004
  Serious: Yes (Other)
  Sender: FDA-Public Use
  Company Number: US-ACCORD-066503

PATIENT
  Age: 63 Year
  Sex: Female

DRUGS (10)
  1. CYTOXAN [Suspect]
     Active Substance: CYCLOPHOSPHAMIDE
     Indication: METASTATIC NEOPLASM
     Dosage: NO OF CYCLE: 04
     Dates: start: 20140724, end: 20141106
  2. IBUPROFEN. [Concomitant]
     Active Substance: IBUPROFEN
  3. DECADRON [Concomitant]
     Active Substance: DEXAMETHASONE
  4. DOCETAXEL ACCORD [Suspect]
     Active Substance: DOCETAXEL
     Indication: METASTATIC NEOPLASM
     Dosage: NO OF CYCLE: 04
     Dates: start: 20140724, end: 20141106
  5. DOXORUBICIN [Suspect]
     Active Substance: DOXORUBICIN
     Indication: METASTATIC NEOPLASM
     Dosage: NO OF CYCLE: 04
     Dates: start: 20140724, end: 20141106
  6. WELLBUTRIN [Concomitant]
     Active Substance: BUPROPION HYDROCHLORIDE
  7. IMITREX [Concomitant]
     Active Substance: SUMATRIPTAN SUCCINATE
  8. LORAZEPAM. [Concomitant]
     Active Substance: LORAZEPAM
     Route: 042
  9. ALOXI [Concomitant]
     Active Substance: PALONOSETRON HYDROCHLORIDE
  10. EMEND [Concomitant]
     Active Substance: APREPITANT

REACTIONS (1)
  - Alopecia [Not Recovered/Not Resolved]

NARRATIVE: CASE EVENT DATE: 20150506
